FAERS Safety Report 11377127 (Version 1)
Quarter: 2015Q3

REPORT INFORMATION
  Report Type: Spontaneous
  Country: US (occurrence: US)
  Receive Date: 20150813
  Receipt Date: 20150813
  Transmission Date: 20151125
  Serious: No
  Sender: FDA-Public Use
  Company Number: US-GALDERMA-US14003970

PATIENT
  Age: 26 Year
  Sex: Female

DRUGS (1)
  1. METRONIDAZOLE GEL, 1% [Suspect]
     Active Substance: METRONIDAZOLE
     Indication: VAGINAL INFECTION
     Dosage: 1 %
     Route: 067
     Dates: start: 201410, end: 201410

REACTIONS (5)
  - Product use issue [Recovered/Resolved]
  - Abdominal pain [Unknown]
  - Vulvovaginal discomfort [Unknown]
  - Gastroenteritis viral [Unknown]
  - Drug dispensing error [Recovered/Resolved]

NARRATIVE: CASE EVENT DATE: 201410
